FAERS Safety Report 5339011-0 (Version None)
Quarter: 2007Q2

REPORT INFORMATION
  Report Type: 
  Country: None (occurrence: None)
  Receive Date: 20070403
  Receipt Date: 20070206
  Transmission Date: 20071010
  Serious: Yes (Other)
  Sender: FDA-Public Use
  Company Number: 2007-0011122

PATIENT
  Age: 64 Year
  Sex: Male
  Weight: 78.9259 kg

DRUGS (6)
  1. TRUVADA [Suspect]
     Indication: HIV INFECTION
     Dosage: 1 DOSAGE FORMS, 1 IN 1 D, ORAL
     Route: 048
     Dates: start: 20061001, end: 20070201
  2. KALETRA [Concomitant]
  3. ZETIA [Concomitant]
  4. CRESTOR [Concomitant]
  5. B12 (CYANOCOBALAMIN-TANNIN COMPLEX) [Concomitant]
  6. MULTIVITAMIN [Concomitant]

REACTIONS (1)
  - NEPHROPATHY [None]
